FAERS Safety Report 7883334-8 (Version None)
Quarter: 2011Q4

REPORT INFORMATION
  Report Type: 
  Country: None (occurrence: None)
  Receive Date: 20111102
  Receipt Date: 20111026
  Transmission Date: 20120403
  Serious: No
  Sender: FDA-Public Use
  Company Number: US-BAYER-2011-105838

PATIENT

DRUGS (2)
  1. ZOCOR [Concomitant]
     Dosage: UNK
  2. BETASERON [Suspect]
     Dosage: 2 MIU, QOD
     Route: 058

REACTIONS (2)
  - CHROMATURIA [None]
  - HEPATIC ENZYME INCREASED [None]
